FAERS Safety Report 8139614-4 (Version None)
Quarter: 2012Q1

REPORT INFORMATION
  Report Type: 
  Country: None (occurrence: None)
  Receive Date: 20120215
  Receipt Date: 20120203
  Transmission Date: 20120608
  Serious: Yes (Other)
  Sender: FDA-Public Use
  Company Number: PHHY2010US48559

PATIENT
  Sex: Male
  Weight: 120.18 kg

DRUGS (8)
  1. TEKTURNA [Concomitant]
     Dosage: 150 MG, UNK
  2. MULTI-VITAMINS [Concomitant]
  3. ASCORBIC ACID [Concomitant]
     Dosage: 500 MG, UNK
  4. NORVASC [Concomitant]
     Dosage: 10 MG, UNK
  5. ASPIRIN [Concomitant]
     Dosage: 81 MG, UNK
  6. GLEEVEC [Suspect]
     Indication: CHRONIC MYELOID LEUKAEMIA
     Dosage: 400 MG, DAILY
     Route: 048
  7. ZOCOR [Concomitant]
     Dosage: 20 MG, UNK
  8. FISH OIL [Concomitant]

REACTIONS (17)
  - LOSS OF CONSCIOUSNESS [None]
  - HEADACHE [None]
  - CONSTIPATION [None]
  - IRRITABILITY [None]
  - ANGER [None]
  - FEELING JITTERY [None]
  - PAIN [None]
  - VISION BLURRED [None]
  - CHEST PAIN [None]
  - MUSCLE SPASMS [None]
  - CHOLECYSTITIS [None]
  - DIARRHOEA [None]
  - DYSPEPSIA [None]
  - FATIGUE [None]
  - ABDOMINAL DISCOMFORT [None]
  - ASTHENIA [None]
  - NAUSEA [None]
